FAERS Safety Report 7929989-0 (Version None)
Quarter: 2011Q4

REPORT INFORMATION
  Report Type: 
  Country: None (occurrence: None)
  Receive Date: 20111117
  Receipt Date: 20111102
  Transmission Date: 20120403
  Serious: Yes (Death, Hospitalization)
  Sender: FDA-Public Use
  Company Number: 2011P1010037

PATIENT
  Age: 17 Year
  Sex: Female

DRUGS (1)
  1. SOLODYN [Suspect]
     Indication: ACNE
     Dosage: 115 MG; PO
     Route: 048
     Dates: start: 20110301, end: 20110101

REACTIONS (2)
  - CARDIO-RESPIRATORY ARREST [None]
  - DRUG RASH WITH EOSINOPHILIA AND SYSTEMIC SYMPTOMS [None]
